FAERS Safety Report 6880831-9 (Version None)
Quarter: 2010Q3

REPORT INFORMATION
  Report Type: 
  Country: None (occurrence: None)
  Receive Date: 20100728
  Receipt Date: 20100716
  Transmission Date: 20110219
  Serious: Yes (Other)
  Sender: FDA-Public Use
  Company Number: SG-ELI_LILLY_AND_COMPANY-SG201007003684

PATIENT
  Age: 65 Year
  Sex: Male

DRUGS (6)
  1. CIALIS [Suspect]
     Indication: ERECTILE DYSFUNCTION
     Dosage: UNK (1/2 TABLET), AS NEEDED (BETWEEN 1-2 TIMES PER WEEK)
     Route: 065
  2. NORVASC [Concomitant]
  3. TENORMIN [Concomitant]
  4. ATACAND HCT [Concomitant]
  5. CRESTOR [Concomitant]
  6. CARDIPRIN [Concomitant]

REACTIONS (2)
  - BLINDNESS [None]
  - RETINAL VEIN OCCLUSION [None]
